FAERS Safety Report 14718519 (Version 1)
Quarter: 2018Q2

REPORT INFORMATION
  Report Type: Spontaneous
  Country: CA (occurrence: CA)
  Receive Date: 20180404
  Receipt Date: 20180404
  Transmission Date: 20180711
  Serious: Yes (Other)
  Sender: FDA-Public Use
  Company Number: CA-TEVA-2018-CA-875667

PATIENT
  Sex: Female
  Weight: 56 kg

DRUGS (1)
  1. CABERGOLINE. [Suspect]
     Active Substance: CABERGOLINE
     Indication: HYPERPROLACTINAEMIA
     Route: 048

REACTIONS (4)
  - Headache [Unknown]
  - Hyperhidrosis [Unknown]
  - Product substitution issue [Unknown]
  - Vision blurred [Unknown]
